FAERS Safety Report 6616874-X (Version None)
Quarter: 2010Q1

REPORT INFORMATION
  Report Type: 
  Country: None (occurrence: None)
  Receive Date: 20100301
  Receipt Date: 20100202
  Transmission Date: 20100710
  Serious: Yes (Hospitalization, Other)
  Sender: FDA-Public Use
  Company Number: TPA2009A03905

PATIENT
  Age: 58 Year
  Sex: Male

DRUGS (3)
  1. PIOGLITAZONE HYDROCHLORIDE [Suspect]
     Indication: TYPE 2 DIABETES MELLITUS
     Dosage: 30 MG, 1 IN 1 D, PER ORAL
     Route: 048
     Dates: start: 20091014, end: 20090101
  2. GLIMEPIRIDE [Suspect]
     Indication: TYPE 2 DIABETES MELLITUS
     Dosage: 4 MG, 1 IN 1 D, PER ORAL
     Route: 048
     Dates: start: 20090806, end: 20090101
  3. METFORMIN HYDROCHLORIDE [Suspect]
     Indication: TYPE 2 DIABETES MELLITUS
     Dosage: PER ORAL
     Route: 048

REACTIONS (6)
  - ABDOMINAL PAIN [None]
  - ADENOCARCINOMA PANCREAS [None]
  - BILIARY DILATATION [None]
  - DIARRHOEA [None]
  - HEPATIC STEATOSIS [None]
  - HEPATOCELLULAR INJURY [None]
